FAERS Safety Report 10356766 (Version 1)
Quarter: 2014Q3

REPORT INFORMATION
  Report Type: Spontaneous
  Country: IN (occurrence: IN)
  Receive Date: 20140801
  Receipt Date: 20140801
  Transmission Date: 20150326
  Serious: Yes (Hospitalization, Other)
  Sender: FDA-Public Use
  Company Number: IN-SUN PHARMACEUTICAL INDUSTRIES LTD-2014SUN01695

PATIENT

DRUGS (1)
  1. OLANZAPINE 5 MG TABLETS [Suspect]
     Active Substance: OLANZAPINE
     Indication: BIPOLAR DISORDER
     Dosage: 5 MG, BID
     Route: 048

REACTIONS (13)
  - Sepsis [Recovered/Resolved]
  - Immunosuppression [Recovered/Resolved]
  - Weight increased [Recovered/Resolved]
  - Pleural effusion [Recovered/Resolved]
  - Dyspnoea [Recovered/Resolved]
  - Abdominal pain upper [Recovered/Resolved]
  - Diabetes mellitus [Recovered/Resolved]
  - Renal failure acute [Recovered/Resolved]
  - Hyperglycaemia [Recovered/Resolved]
  - Pancreatitis acute [Recovered/Resolved]
  - Nausea [Recovered/Resolved]
  - Vomiting [Recovered/Resolved]
  - Hypertriglyceridaemia [Recovered/Resolved]
